FAERS Safety Report 20632354 (Version 3)
Quarter: 2022Q2

REPORT INFORMATION
  Report Type: Report from Study
  Country: US (occurrence: US)
  Receive Date: 20220324
  Receipt Date: 20220614
  Transmission Date: 20220721
  Serious: Yes (Hospitalization)
  Sender: FDA-Public Use
  Company Number: US-BAUSCH-BL-2022-007451

PATIENT
  Age: 72 Year
  Sex: Male
  Weight: 108 kg

DRUGS (32)
  1. XIFAXAN [Suspect]
     Active Substance: RIFAXIMIN
     Indication: Hepatic cirrhosis
     Route: 048
     Dates: start: 20191008
  2. LACTULOSE [Suspect]
     Active Substance: LACTULOSE
     Indication: Liver disorder
     Dosage: 10 GM/15 ML.
     Route: 048
     Dates: start: 20220227, end: 20220329
  3. ALBUTEROL SULFATE [Concomitant]
     Active Substance: ALBUTEROL SULFATE
     Indication: Wheezing
     Dosage: 108 (90 BASE) MCG/ACT INHALER, INAHALE 2 PUFFS BY MOUTH EVERY 6 HOURS AS NEEDED.
     Route: 055
     Dates: start: 20211217
  4. APIXABAN [Concomitant]
     Active Substance: APIXABAN
     Indication: Product used for unknown indication
     Route: 048
     Dates: start: 20220302
  5. ASCORBIC ACID [Concomitant]
     Active Substance: ASCORBIC ACID
     Indication: Vitamin C abnormal
     Route: 048
     Dates: start: 20210721
  6. ATORVASTATIN [Concomitant]
     Active Substance: ATORVASTATIN
     Indication: Hyperlipidaemia
     Dosage: AT NIGHT.
     Route: 048
     Dates: start: 20210721
  7. BLACK CURRANT OIL [Concomitant]
     Indication: Supplementation therapy
     Dosage: BLACK CURRANT SEED OIL
     Route: 048
     Dates: start: 20220302
  8. SYMBICORT [Concomitant]
     Active Substance: BUDESONIDE\FORMOTEROL FUMARATE DIHYDRATE
     Indication: Product used for unknown indication
     Dosage: 160-4.5 MCG/ACT INHALER, INAHALE 2 PUFFS INTO THE LUNGS 2 TIMES DAILY
     Route: 055
     Dates: start: 20211217
  9. BUMETANIDE [Concomitant]
     Active Substance: BUMETANIDE
     Indication: Urinary tract disorder
     Dosage: 1 TAB IN MORNING AND 1 TAB IN THE EARLY AFTERNOON.
     Route: 048
     Dates: start: 20211105
  10. CARVEDILOL [Concomitant]
     Active Substance: CARVEDILOL
     Indication: Hypertension
     Dosage: 1 TAB IN MORNING AND 1 TAB IN THE EARLY AFTERNOON.
     Route: 048
     Dates: start: 20191217
  11. CLOPIDOGREL [Concomitant]
     Active Substance: CLOPIDOGREL BISULFATE
     Indication: Hypercoagulation
     Dosage: ON HOLD UNTIL AFTER RIGHT KNEE SURGERY.
     Route: 048
     Dates: start: 20210818
  12. CYCLOBENZAPRINE [Concomitant]
     Active Substance: CYCLOBENZAPRINE
     Indication: Muscle spasms
     Dates: start: 20220309
  13. CYCLOBENZAPRINE [Concomitant]
     Active Substance: CYCLOBENZAPRINE
     Route: 048
     Dates: start: 20220310, end: 20220320
  14. FLUTICASONE PROPIONATE\SALMETEROL XINAFOATE [Concomitant]
     Active Substance: FLUTICASONE PROPIONATE\SALMETEROL XINAFOATE
     Indication: Product used for unknown indication
     Dosage: INHALE 2 PUFFS INTO THE LUNGS 2 TIMES DAILY
     Route: 055
     Dates: start: 20210126
  15. FOLIC ACID [Concomitant]
     Active Substance: FOLIC ACID
     Indication: Supplementation therapy
     Route: 048
     Dates: start: 20210922
  16. GABAPENTIN [Concomitant]
     Active Substance: GABAPENTIN
     Indication: Nerve injury
     Route: 048
     Dates: start: 20210728
  17. ONETOUCH VERIO [Concomitant]
     Indication: Nerve injury
     Dosage: ONETOUCH VERIO VERIO- TEST STRIP
     Dates: start: 20220224
  18. ACETAMINOPHEN\HYDROCODONE [Concomitant]
     Active Substance: ACETAMINOPHEN\HYDROCODONE
     Indication: Pain
     Dosage: HYDROCODONE-ACETAMINOPHEN 10-325 MG TABLET. EVERY 6 HOURS AS NEEDED.
     Route: 048
     Dates: start: 20210721
  19. INSULIN ASPART [Concomitant]
     Active Substance: INSULIN ASPART
     Indication: Blood glucose increased
     Dosage: 100 UNITS/ ML INJECTION PEN. INJECT 16 UNITS INTO THE SKIN,BEFORE MEAL. TAKE NOVOLOG IF GLUCOSE }150
     Dates: start: 20220307
  20. INSULIN NOS [Concomitant]
     Active Substance: INSULIN NOS
     Indication: Product used for unknown indication
     Dosage: NOVOFINE PLUS PEN NEEDLE 32G X4MM MISC
     Dates: start: 20220307
  21. NOVOLOG [Concomitant]
     Active Substance: INSULIN ASPART
     Indication: Blood glucose increased
     Dosage: IF GLUCOSE IS MORE THAN 150, 151-200:1U(UNIT),201-250:2U, 251-300:3U,301-350:4U,351-400:5U,}400:6U
  22. MAGNESIUM OXIDE [Concomitant]
     Active Substance: MAGNESIUM OXIDE
     Indication: Magnesium deficiency
     Dosage: ONETOUCH DELICA PLUS LANCET33G MISC MAGNESIUM OXIDE 400(241.3) MG TABLET
     Route: 048
     Dates: start: 20210721
  23. MELATONIN [Concomitant]
     Active Substance: MELATONIN
     Indication: Initial insomnia
     Dosage: AT BEDTIME 2 TABLETS
     Route: 048
     Dates: start: 20210721
  24. MONTELUKAST [Concomitant]
     Active Substance: MONTELUKAST SODIUM
     Indication: Hypersensitivity
     Dosage: AT BEDTIME 1 TABLETS
     Route: 048
     Dates: start: 20210922
  25. NITROGLYCERIN [Concomitant]
     Active Substance: NITROGLYCERIN
     Indication: Chest pain
     Dosage: SL TABLET. 1 TAB PLACE UNDER THE TONGUE EVERY 5 MINUTES AS NEEDED. MAXIMUM OF 3 DOSES
     Route: 060
     Dates: start: 20210812
  26. OMEGACTIVE 3 6 9 [Concomitant]
     Indication: Supplementation therapy
     Dosage: BLACK SEED OIL.
     Route: 048
     Dates: start: 20210511
  27. PANTOPRAZOLE [Concomitant]
     Active Substance: PANTOPRAZOLE
     Indication: Dyspepsia
     Dosage: PANTOPRAZOLE EC
     Route: 048
     Dates: start: 20191008
  28. SPIRONOLACTONE [Concomitant]
     Active Substance: SPIRONOLACTONE
     Indication: Fluid retention
     Route: 048
     Dates: start: 20220301, end: 20220430
  29. VITAMIN B12 [Concomitant]
     Active Substance: CYANOCOBALAMIN
     Indication: Anaemia
     Route: 048
     Dates: start: 20210721
  30. VITAMIN C [Concomitant]
     Active Substance: ASCORBIC ACID
     Indication: Supplementation therapy
     Route: 048
     Dates: start: 20220302
  31. VITAMIN D3 [Concomitant]
     Active Substance: CHOLECALCIFEROL
     Indication: Hypovitaminosis
     Dosage: 5000 UNITS CAPSULE, TAKE 1000 UNITS BY MOUTH DAILY
     Route: 048
     Dates: start: 20210721
  32. ZINC [Concomitant]
     Active Substance: ZINC
     Indication: Zinc deficiency
     Route: 048
     Dates: start: 20210721

REACTIONS (5)
  - Hepatic encephalopathy [Unknown]
  - Ammonia increased [Unknown]
  - Limb injury [Unknown]
  - Fall [Unknown]
  - Diarrhoea [Recovering/Resolving]

NARRATIVE: CASE EVENT DATE: 20220312
